FAERS Safety Report 11070981 (Version 1)
Quarter: 2015Q2

REPORT INFORMATION
  Report Type: Spontaneous
  Country: JP (occurrence: JP)
  Receive Date: 20150428
  Receipt Date: 20150428
  Transmission Date: 20150821
  Serious: Yes (Other)
  Sender: FDA-Public Use
  Company Number: JP-AMGEN-JPNSP2015040456

PATIENT
  Age: 38 Year
  Sex: Female
  Weight: 48 kg

DRUGS (10)
  1. CALONAL [Concomitant]
     Active Substance: ACETAMINOPHEN
     Dosage: UNK
  2. YAKUBAN [Concomitant]
     Active Substance: FLURBIPROFEN
     Dosage: UNK
  3. THYRADIN [Suspect]
     Active Substance: LEVOTHYROXINE
     Indication: HYPOTHYROIDISM
     Dosage: 125 MUG, UNK
     Route: 065
  4. OMEPRAL                            /00661201/ [Concomitant]
     Active Substance: OMEPRAZOLE
     Indication: GASTROOESOPHAGEAL REFLUX DISEASE
     Dosage: UNK
  5. FERROMIA [Concomitant]
     Active Substance: FERROUS CITRATE
     Dosage: UNK
  6. THYRADIN [Suspect]
     Active Substance: LEVOTHYROXINE
     Indication: GASTROOESOPHAGEAL REFLUX DISEASE
  7. BIOFERMIN T [Concomitant]
     Dosage: UNK
  8. ENBREL [Suspect]
     Active Substance: ETANERCEPT
     Indication: RHEUMATOID ARTHRITIS
     Dosage: UNK, WEEKLY
     Route: 065
     Dates: end: 20140808
  9. PREDONINE [Suspect]
     Active Substance: PREDNISOLONE\PREDNISOLONE ACETATE\PREDNISOLONE SODIUM SUCCINATE
     Indication: RHEUMATOID ARTHRITIS
     Dosage: 12.5 MG, UNK
     Route: 065
  10. GASTER [Concomitant]
     Active Substance: FAMOTIDINE
     Indication: GASTROOESOPHAGEAL REFLUX DISEASE
     Dosage: UNK

REACTIONS (4)
  - Back disorder [Unknown]
  - Premature separation of placenta [Unknown]
  - Hand deformity [Unknown]
  - Rheumatic disorder [Unknown]
